FAERS Safety Report 18180470 (Version 2)
Quarter: 2020Q3

REPORT INFORMATION
  Report Type: Spontaneous
  Country: CN (occurrence: CN)
  Receive Date: 20200821
  Receipt Date: 20200828
  Transmission Date: 20201103
  Serious: Yes (Other)
  Sender: FDA-Public Use
  Company Number: CN-PFIZER INC-2020321021

PATIENT
  Age: 61 Year
  Sex: Male

DRUGS (1)
  1. CEFOPERAZONE SODIUM [Suspect]
     Active Substance: CEFOPERAZONE SODIUM
     Indication: INFECTION
     Dosage: 2 G, 2X/DAY
     Route: 041
     Dates: start: 20200813, end: 20200814

REACTIONS (4)
  - Pruritus [Recovering/Resolving]
  - Contraindicated product administered [Unknown]
  - Rash erythematous [Recovering/Resolving]
  - Hypersensitivity [Recovering/Resolving]

NARRATIVE: CASE EVENT DATE: 20200813
